FAERS Safety Report 18349364 (Version 1)
Quarter: 2020Q4

REPORT INFORMATION
  Report Type: Spontaneous
  Country: US (occurrence: US)
  Receive Date: 20201006
  Receipt Date: 20201006
  Transmission Date: 20210114
  Serious: No
  Sender: FDA-Public Use
  Company Number: None

PATIENT
  Sex: Female
  Weight: 42.18 kg

DRUGS (5)
  1. ACYCLOVIR. [Concomitant]
     Active Substance: ACYCLOVIR
  2. LOVASTATIN. [Concomitant]
     Active Substance: LOVASTATIN
  3. DEXAMETHASONE. [Suspect]
     Active Substance: DEXAMETHASONE
     Indication: SUPPORTIVE CARE
     Route: 048
     Dates: start: 20200609, end: 20201006
  4. NINLARO [Suspect]
     Active Substance: IXAZOMIB CITRATE
     Indication: PLASMA CELL MYELOMA
     Route: 048
     Dates: start: 20200610, end: 20201006
  5. ZOFRAN [Concomitant]
     Active Substance: ONDANSETRON HYDROCHLORIDE

REACTIONS (1)
  - Disease progression [None]
